FAERS Safety Report 4461197-0 (Version None)
Quarter: 2004Q3

REPORT INFORMATION
  Report Type: 
  Country: None (occurrence: None)
  Receive Date: 20040922
  Receipt Date: 20040922
  Transmission Date: 20050211
  Serious: Yes (Life-Threatening)
  Sender: FDA-Public Use
  Company Number: None

PATIENT

DRUGS (2)
  1. PERCOGESIC 30 MG [Suspect]
     Indication: CARPAL TUNNEL SYNDROME
     Dosage: 4 TIMES PER DAY BY MOUTH
     Route: 048
  2. ELAVIL [Suspect]
     Dosage: 1 TIME PER DAY BY MOUTH
     Route: 048

REACTIONS (8)
  - ABNORMAL BEHAVIOUR [None]
  - MOOD SWINGS [None]
  - OEDEMA PERIPHERAL [None]
  - POLLAKIURIA [None]
  - POLYDIPSIA [None]
  - PSYCHOMOTOR HYPERACTIVITY [None]
  - SWOLLEN TONGUE [None]
  - WEIGHT DECREASED [None]
